FAERS Safety Report 7466206-2 (Version None)
Quarter: 2011Q2

REPORT INFORMATION
  Report Type: 
  Country: None (occurrence: None)
  Receive Date: 20110509
  Receipt Date: 20110428
  Transmission Date: 20111010
  Serious: Yes (Other)
  Sender: FDA-Public Use
  Company Number: PHHY2011IT21774

PATIENT
  Age: 65 Year
  Sex: Male

DRUGS (5)
  1. METHYLPREDNISOLONE [Suspect]
     Dosage: 20 MG, IN THE MORNING
  2. METHYLPREDNISOLONE [Suspect]
     Indication: PEMPHIGUS
     Dosage: 50 MG, BID
  3. METHYLPREDNISOLONE [Suspect]
     Dosage: 20 MG IN THE MORNING AND 24 MG IN THE EVENING
  4. CYCLOSPORINE [Suspect]
     Dosage: 1 DF, BID WITH SUNDAY AND THURSDAY OFF
  5. METHOTREXATE [Suspect]
     Dosage: 15 MG, UNK
     Route: 042

REACTIONS (28)
  - POVERTY OF THOUGHT CONTENT [None]
  - MYALGIA [None]
  - SPLENOMEGALY [None]
  - LUNG ABSCESS [None]
  - ECCHYMOSIS [None]
  - VISUAL IMPAIRMENT [None]
  - DYSPNOEA [None]
  - HERPES VIRUS INFECTION [None]
  - ERYTHEMA [None]
  - HEPATOMEGALY [None]
  - NOCARDIOSIS [None]
  - ABDOMINAL ABSCESS [None]
  - ARTHRALGIA [None]
  - ASTHENIA [None]
  - PYREXIA [None]
  - HEADACHE [None]
  - TACHYCARDIA [None]
  - CUSHING'S SYNDROME [None]
  - RALES [None]
  - BRAIN ABSCESS [None]
  - SPEECH DISORDER [None]
  - STUPOR [None]
  - BACK PAIN [None]
  - FATIGUE [None]
  - WEIGHT INCREASED [None]
  - DERMATITIS BULLOUS [None]
  - CUSHINGOID [None]
  - LIPOHYPERTROPHY [None]
